FAERS Safety Report 8167874-2 (Version None)
Quarter: 2012Q1

REPORT INFORMATION
  Report Type: 
  Country: None (occurrence: None)
  Receive Date: 20120227
  Receipt Date: 20101114
  Transmission Date: 20120608
  Serious: Yes (Death, Other)
  Sender: FDA-Public Use
  Company Number: FR-ROCHE-579571

PATIENT

DRUGS (2)
  1. IRINOTECAN HCL [Suspect]
     Indication: GLIOMA
     Dosage: GIVEN OVER 90 MINUTES
     Route: 042
  2. AVASTIN [Suspect]
     Indication: GLIOMA
     Dosage: 10 MG/KG OVER 90 MINUTES FOR THE FIRST INFUSION, 60 MINUTES FOR THE SECOND COURSE OF TREATMENT 30
     Route: 042

REACTIONS (5)
  - PULMONARY EMBOLISM [None]
  - MYOCARDIAL INFARCTION [None]
  - SUDDEN DEATH [None]
  - LEUKOENCEPHALOPATHY [None]
  - TUMOUR HAEMORRHAGE [None]
